FAERS Safety Report 24020728 (Version 4)
Quarter: 2024Q4

REPORT INFORMATION
  Report Type: Report from Study
  Country: US (occurrence: US)
  Receive Date: 20240627
  Receipt Date: 20241120
  Transmission Date: 20250114
  Serious: No
  Sender: PFIZER
  Company Number: US-PFIZER INC-202400201431

PATIENT
  Age: 59 Year
  Sex: Female

DRUGS (2)
  1. TUKYSA [Suspect]
     Active Substance: TUCATINIB
     Dosage: 150 MG
     Route: 048
     Dates: start: 20240508
  2. TUKYSA [Suspect]
     Active Substance: TUCATINIB
     Dosage: 150MG, 2 TABLETS TWICE DAILY, ORAL
     Route: 048
     Dates: end: 2024

REACTIONS (2)
  - Gastrointestinal pain [Recovering/Resolving]
  - Neoplasm progression [Unknown]

NARRATIVE: CASE EVENT DATE: 20240101
